FAERS Safety Report 6264941-5 (Version None)
Quarter: 2009Q3

REPORT INFORMATION
  Report Type: 
  Country: None (occurrence: None)
  Receive Date: 20090709
  Receipt Date: 20090709
  Transmission Date: 20100115
  Serious: Yes (Other)
  Sender: FDA-Public Use
  Company Number: None

PATIENT
  Age: 85 Year
  Sex: Male
  Weight: 58.0604 kg

DRUGS (2)
  1. NASONEX [Suspect]
     Indication: INCREASED UPPER AIRWAY SECRETION
     Dosage: SPRAY TWICE IN EA. NOSTRIL PER DAY
     Dates: start: 20090512, end: 20090528
  2. NASONEX [Suspect]
     Indication: SINUSITIS
     Dosage: SPRAY TWICE IN EA. NOSTRIL PER DAY
     Dates: start: 20090512, end: 20090528

REACTIONS (2)
  - DYSCALCULIA [None]
  - STUPOR [None]
